FAERS Safety Report 4449536-8 (Version None)
Quarter: 2004Q3

REPORT INFORMATION
  Report Type: 
  Country: None (occurrence: None)
  Receive Date: 20040914
  Receipt Date: 20040825
  Transmission Date: 20050211
  Serious: Yes (Other)
  Sender: FDA-Public Use
  Company Number: CA-ROCHE-380029

PATIENT
  Age: 36 Year
  Sex: Male

DRUGS (5)
  1. CELLCEPT [Suspect]
     Indication: DRUG USE FOR UNKNOWN INDICATION
     Route: 065
  2. PREDNISONE [Suspect]
     Indication: DRUG USE FOR UNKNOWN INDICATION
     Route: 065
  3. FK 506 [Suspect]
     Indication: DRUG USE FOR UNKNOWN INDICATION
     Route: 065
  4. THYMOGLOBULIN [Suspect]
     Indication: DRUG USE FOR UNKNOWN INDICATION
     Route: 065
  5. SIROLIMUS [Concomitant]

REACTIONS (4)
  - BLOOD CREATININE INCREASED [None]
  - COMPLEMENT FACTOR ABNORMAL [None]
  - GLOMERULONEPHRITIS [None]
  - THROMBOTIC THROMBOCYTOPENIC PURPURA [None]
